FAERS Safety Report 9705259 (Version 1)
Quarter: 2013Q4

REPORT INFORMATION
  Report Type: Spontaneous
  Country: CA (occurrence: CA)
  Receive Date: 20131122
  Receipt Date: 20131122
  Transmission Date: 20140711
  Serious: Yes (Death, Other)
  Sender: FDA-Public Use
  Company Number: CA-GILEAD-2013-0088496

PATIENT
  Age: 58 Year
  Sex: Male

DRUGS (4)
  1. AMBRISENTAN [Suspect]
     Indication: PULMONARY ARTERIAL HYPERTENSION
     Dosage: 10MG UNKNOWN
     Route: 048
     Dates: start: 20110216
  2. LYRICA [Concomitant]
  3. TRIZIVIR [Concomitant]
  4. SUSTIVA [Concomitant]

REACTIONS (2)
  - Death [Fatal]
  - Cardiac disorder [Fatal]
